FAERS Safety Report 7097845-9 (Version None)
Quarter: 2010Q4

REPORT INFORMATION
  Report Type: 
  Country: None (occurrence: None)
  Receive Date: 20101112
  Receipt Date: 20101021
  Transmission Date: 20110411
  Serious: Yes (Hospitalization, Other)
  Sender: FDA-Public Use
  Company Number: US-BAYER-201013952NA

PATIENT
  Age: 27 Year
  Sex: Female
  Weight: 59 kg

DRUGS (7)
  1. YAZ [Suspect]
     Indication: PREMENSTRUAL SYNDROME
     Route: 048
     Dates: start: 20071201
  2. YASMIN [Suspect]
     Indication: PREMENSTRUAL SYNDROME
     Route: 048
     Dates: start: 20060701, end: 20070701
  3. MIRENA [Suspect]
     Indication: PRODUCT USED FOR UNKNOWN INDICATION
     Dosage: FREQUENCY: CONTINUOUS
     Route: 015
     Dates: start: 20071001, end: 20071211
  4. IBUPROFEN [Concomitant]
  5. DEPO-PROVERA [Concomitant]
     Dates: start: 20070701, end: 20071001
  6. DEPO-PROVERA [Concomitant]
     Dates: start: 20080701
  7. CYMBALTA [Concomitant]
     Dosage: TOTAL DAILY DOSE: 60 MG  UNIT DOSE: 30 MG

REACTIONS (18)
  - ABDOMINAL PAIN [None]
  - ABDOMINAL PAIN UPPER [None]
  - ABORTION SPONTANEOUS [None]
  - ACNE [None]
  - BACK PAIN [None]
  - CEREBROVASCULAR ACCIDENT [None]
  - DEPRESSION [None]
  - DERMATITIS ACNEIFORM [None]
  - DYSURIA [None]
  - GALLBLADDER NON-FUNCTIONING [None]
  - MENORRHAGIA [None]
  - MOOD ALTERED [None]
  - MUSCLE SPASMS [None]
  - NAUSEA [None]
  - POLLAKIURIA [None]
  - PREGNANCY ON ORAL CONTRACEPTIVE [None]
  - TRANSIENT ISCHAEMIC ATTACK [None]
  - VOMITING [None]
